FAERS Safety Report 4303280-6 (Version None)
Quarter: 2004Q1

REPORT INFORMATION
  Report Type: 
  Country: None (occurrence: None)
  Receive Date: 20040223
  Receipt Date: 20040203
  Transmission Date: 20041129
  Serious: Yes (Other)
  Sender: FDA-Public Use
  Company Number: -J.F

PATIENT
  Age: 73 Year
  Sex: Male
  Weight: 76.2043 kg

DRUGS (8)
  1. ELOXATIN [Suspect]
     Indication: COLORECTAL CANCER
     Dosage: 159 MG Q2W - INTRAVENOUS NOS
     Route: 042
     Dates: start: 20030730, end: 20030730
  2. ELOXATIN [Suspect]
     Indication: METASTASES TO ABDOMINAL CAVITY
     Dosage: 159 MG Q2W - INTRAVENOUS NOS
     Route: 042
     Dates: start: 20030730, end: 20030730
  3. FLUOROUCIL [Concomitant]
  4. LEUCOVORIN [Concomitant]
  5. DOLASETRON MESILATE [Concomitant]
  6. DEXAMETHASONE [Concomitant]
  7. CALCIUM GLUCONATE [Concomitant]
  8. MAGNESIUM SULFATE [Concomitant]

REACTIONS (1)
  - APLASTIC ANAEMIA [None]
